FAERS Safety Report 4945314-1 (Version None)
Quarter: 2006Q1

REPORT INFORMATION
  Report Type: 
  Country: None (occurrence: None)
  Receive Date: 20060315
  Receipt Date: 20060315
  Transmission Date: 20060701
  Serious: Yes (Life-Threatening, Hospitalization)
  Sender: FDA-Public Use
  Company Number: None

PATIENT
  Sex: Male

DRUGS (1)
  1. COPAXONE [Suspect]
     Indication: MULTIPLE SCLEROSIS
     Dosage: 20 MG QD SQ
     Route: 058
     Dates: start: 20050501, end: 20060128

REACTIONS (3)
  - HEPATIC FAILURE [None]
  - MYOCARDIAL INFARCTION [None]
  - RENAL FAILURE [None]
